FAERS Safety Report 20148334 (Version 2)
Quarter: 2021Q4

REPORT INFORMATION
  Report Type: Spontaneous
  Country: US (occurrence: US)
  Receive Date: 20211204
  Receipt Date: 20211209
  Transmission Date: 20220303
  Serious: No
  Sender: FDA-Public Use
  Company Number: US-SANOFI-00875698

PATIENT
  Age: 67 Year
  Sex: Female

DRUGS (1)
  1. LANTUS SOLOSTAR [Suspect]
     Active Substance: INSULIN GLARGINE
     Indication: Type 1 diabetes mellitus
     Dosage: 30 IU, Q12H
     Dates: start: 2017

REACTIONS (7)
  - Nervousness [Unknown]
  - Depressed mood [Unknown]
  - Hyperglycaemia [Unknown]
  - Drug dose omission by device [Unknown]
  - Device issue [Unknown]
  - Inappropriate schedule of product administration [Unknown]
  - Expired device used [Unknown]

NARRATIVE: CASE EVENT DATE: 20170101
